FAERS Safety Report 8423379-2 (Version None)
Quarter: 2012Q2

REPORT INFORMATION
  Report Type: 
  Country: None (occurrence: None)
  Receive Date: 20120608
  Receipt Date: 20120601
  Transmission Date: 20120825
  Serious: Yes (Other)
  Sender: FDA-Public Use
  Company Number: CHPA2012JP011808

PATIENT

DRUGS (2)
  1. NICOTINE [Suspect]
     Dosage: UNK, UNK
     Route: 062
  2. ANTIHYPERTENSIVE DRUGS [Concomitant]
     Indication: HYPERTENSION

REACTIONS (2)
  - GAIT DISTURBANCE [None]
  - DYSARTHRIA [None]
